FAERS Safety Report 9321656 (Version 1)
Quarter: 2013Q2

REPORT INFORMATION
  Report Type: Spontaneous
  Country: US (occurrence: US)
  Receive Date: 20130531
  Receipt Date: 20130531
  Transmission Date: 20140414
  Serious: No
  Sender: FDA-Public Use
  Company Number: US-BAYER-2013-066840

PATIENT
  Age: 57 Year
  Sex: Female
  Weight: 54.42 kg

DRUGS (3)
  1. ALEVE TABLET [Suspect]
     Indication: BACK PAIN
     Dosage: 2 DF, PRN
     Route: 048
  2. KLONOPIN [Concomitant]
  3. TRILAFON [Concomitant]

REACTIONS (1)
  - Drug ineffective [None]
